FAERS Safety Report 7434981-9 (Version None)
Quarter: 2011Q2

REPORT INFORMATION
  Report Type: 
  Country: None (occurrence: None)
  Receive Date: 20110425
  Receipt Date: 20110420
  Transmission Date: 20111010
  Serious: Yes (Hospitalization)
  Sender: FDA-Public Use
  Company Number: FI-ROCHE-772635

PATIENT
  Sex: Female

DRUGS (2)
  1. HERCEPTIN [Suspect]
     Route: 065
  2. DOCETAXEL [Concomitant]

REACTIONS (2)
  - DIVERTICULAR PERFORATION [None]
  - IMPAIRED HEALING [None]
